FAERS Safety Report 8408853-7 (Version None)
Quarter: 2012Q2

REPORT INFORMATION
  Report Type: 
  Country: None (occurrence: None)
  Receive Date: 20120604
  Receipt Date: 20120229
  Transmission Date: 20120825
  Serious: No
  Sender: FDA-Public Use
  Company Number: US-NOVEN-12US004187

PATIENT
  Sex: Male

DRUGS (2)
  1. AMOXICILLIN [Concomitant]
     Indication: OROPHARYNGEAL PAIN
     Route: 048
  2. DAYTRANA [Suspect]
     Indication: ATTENTION DEFICIT/HYPERACTIVITY DISORDER
     Dosage: UNK
     Route: 062
     Dates: start: 20120227

REACTIONS (1)
  - AGGRESSION [None]
